FAERS Safety Report 4669578-7 (Version None)
Quarter: 2005Q2

REPORT INFORMATION
  Report Type: 
  Country: None (occurrence: None)
  Receive Date: 20050520
  Receipt Date: 20050413
  Transmission Date: 20051028
  Serious: Yes (Death)
  Sender: FDA-Public Use
  Company Number: 2005S1002373

PATIENT
  Age: 84 Year
  Sex: Male

DRUGS (14)
  1. CLOZAPINE [Suspect]
     Indication: SCHIZOPHRENIA
     Dosage: 12.5 MG; QD; PO
     Route: 048
     Dates: start: 20030819, end: 20050201
  2. IPRATROPIUM BROMIDE [Concomitant]
  3. ESCITALOPRAM OXALATE [Concomitant]
  4. CARBIDOPA AND LEVODOPA [Concomitant]
  5. CYANOCOBALAMIN [Concomitant]
  6. LORAZEPAM [Concomitant]
  7. FUROSEMIDE [Concomitant]
  8. RANITIDINE HYDROCHLORIDE [Concomitant]
  9. LISINOPRIL [Concomitant]
  10. FLUTICASONE PROPIONATE/SALMETEROL XINAFOATE [Concomitant]
  11. POTASSIUM CHLORIDE [Concomitant]
  12. SALBUTAMOL [Concomitant]
  13. SORBITOL [Concomitant]
  14. HYOSCYAMINE SULFATE [Concomitant]

REACTIONS (1)
  - PNEUMONIA [None]
